FAERS Safety Report 19389002 (Version 1)
Quarter: 2021Q2

REPORT INFORMATION
  Report Type: Spontaneous
  Country: US (occurrence: US)
  Receive Date: 20210607
  Receipt Date: 20210607
  Transmission Date: 20210717
  Serious: No
  Sender: FDA-Public Use
  Company Number: US-FDC LIMITED-2021RIS00002

PATIENT
  Age: 68 Year
  Sex: Female
  Weight: 79.37 kg

DRUGS (22)
  1. LISINOPRIL. [Concomitant]
     Active Substance: LISINOPRIL
  2. SIMVASTATIN. [Concomitant]
     Active Substance: SIMVASTATIN
  3. HYDROCODONE; ACETAMINOPHEN [Concomitant]
  4. LORAZEPAM. [Concomitant]
     Active Substance: LORAZEPAM
  5. FISH OIL [Concomitant]
     Active Substance: FISH OIL
  6. TESTOSTERONE. [Concomitant]
     Active Substance: TESTOSTERONE
  7. METHOCARBAMOL. [Concomitant]
     Active Substance: METHOCARBAMOL
  8. VALERIAN ROOT [Concomitant]
     Active Substance: VALERIAN
  9. TRAVATAN Z [Concomitant]
     Active Substance: TRAVOPROST
  10. VITAMIN D [Concomitant]
     Active Substance: VITAMIN D NOS
  11. MILK THISTLE [Concomitant]
     Active Substance: DIETARY SUPPLEMENT\HERBALS\MILK THISTLE
  12. LIOTHYRONINE [Concomitant]
     Active Substance: LIOTHYRONINE
  13. LEVOTHYROXINE. [Concomitant]
     Active Substance: LEVOTHYROXINE
  14. AMITIZA [Concomitant]
     Active Substance: LUBIPROSTONE
  15. ONE A DAY WOMEN^S 50 PLUS [Concomitant]
     Active Substance: MINERALS\VITAMINS
  16. TIMOLOL MALEATE. [Suspect]
     Active Substance: TIMOLOL MALEATE
     Indication: GLAUCOMA
     Dosage: 1 DROP, 2X/DAY IN EACH EYE (APPROXIMATELY EVERY 12 HOURS)
     Route: 047
     Dates: start: 201910
  17. PROGESTERONE. [Concomitant]
     Active Substance: PROGESTERONE
  18. BUSPIRONE [Concomitant]
     Active Substance: BUSPIRONE HYDROCHLORIDE
  19. MOVE FREE ADVANCED [Concomitant]
  20. ESTRADIOL. [Concomitant]
     Active Substance: ESTRADIOL
  21. METOPROLOL SUCC [Concomitant]
     Active Substance: METOPROLOL SUCCINATE
  22. VITAMIN B12 [Concomitant]
     Active Substance: CYANOCOBALAMIN

REACTIONS (9)
  - Skin exfoliation [Recovered/Resolved]
  - Eye pain [Recovered/Resolved]
  - Vision blurred [Recovered/Resolved]
  - Visual impairment [Recovered/Resolved]
  - Hypersensitivity [Recovered/Resolved]
  - Asthenopia [Recovered/Resolved]
  - Fall [Recovered/Resolved]
  - Blepharitis [Recovered/Resolved]
  - Pain in extremity [Not Recovered/Not Resolved]

NARRATIVE: CASE EVENT DATE: 2019
